FAERS Safety Report 4824156-1 (Version None)
Quarter: 2005Q4

REPORT INFORMATION
  Report Type: 
  Country: None (occurrence: None)
  Receive Date: 20051108
  Receipt Date: 20051024
  Transmission Date: 20060501
  Serious: Yes (Hospitalization)
  Sender: FDA-Public Use
  Company Number: USA040671069

PATIENT
  Age: 73 Year
  Sex: Female
  Weight: 57 kg

DRUGS (8)
  1. FORTEO [Suspect]
     Indication: OSTEOPOROSIS
     Dosage: 20 UG/1 DAY
     Dates: start: 20040623
  2. HYDROCODONE [Concomitant]
  3. SYNTHROID [Concomitant]
  4. ZIAC [Concomitant]
  5. CLONAZEPAM [Concomitant]
  6. TRAZODONE HCL [Concomitant]
  7. FLUVASTATIN SODIUM [Concomitant]
  8. PANTOPRAZOLE [Concomitant]

REACTIONS (15)
  - COMPLEX REGIONAL PAIN SYNDROME [None]
  - DIARRHOEA [None]
  - HYPOAESTHESIA [None]
  - INJECTION SITE BRUISING [None]
  - INJECTION SITE ERYTHEMA [None]
  - INJECTION SITE HAEMORRHAGE [None]
  - INSOMNIA [None]
  - MUSCLE DISORDER [None]
  - MUSCLE SPASMS [None]
  - NERVE INJURY [None]
  - NEUROPATHY [None]
  - PAIN IN EXTREMITY [None]
  - PHARMACEUTICAL PRODUCT COMPLAINT [None]
  - RASH [None]
  - WEIGHT INCREASED [None]
